FAERS Safety Report 4480811-7 (Version None)
Quarter: 2004Q4

REPORT INFORMATION
  Report Type: 
  Country: None (occurrence: None)
  Receive Date: 20041019
  Receipt Date: 20041007
  Transmission Date: 20050328
  Serious: Yes (Hospitalization)
  Sender: FDA-Public Use
  Company Number: 2004235130US

PATIENT
  Age: 35 Year
  Sex: Female
  Weight: 136.1 kg

DRUGS (14)
  1. ELLENCE (EPPIRUBICIN HYDROCHLORIDE) SOLUTION, STERILE [Suspect]
     Indication: BREAST CANCER
     Dosage: 165 MG, CYCLE 3
     Dates: start: 20040914, end: 20040914
  2. COMPARATOR-DOCETAXEL(DOCETAXEL) INJECTION [Suspect]
     Indication: BREAST CANCER
     Dosage: 165 MG, CYCLE 3
     Dates: start: 20040914, end: 20040914
  3. CYCLOPHOSPHAMIDE [Suspect]
     Indication: BREAST CANCER
     Dosage: 1100 MG, CYCLE 3
     Dates: start: 20040914, end: 20040914
  4. PROCRIT [Concomitant]
  5. ANZEMET (DOLASETRON MESILATE) [Concomitant]
  6. DECADRON [Concomitant]
  7. BENADRYL [Concomitant]
  8. TAGAMET [Concomitant]
  9. COMPAZINE (PROCHLORPERAZINE HYDROCHLORIDE) [Concomitant]
  10. WELLBUTRIN [Concomitant]
  11. DARVOCET-N (DEXTROPROPROXYPHENE) [Concomitant]
  12. K-TAB [Concomitant]
  13. EFFEXOR [Concomitant]
  14. ATIVAN [Concomitant]

REACTIONS (11)
  - ASTHENIA [None]
  - BLOOD PRESSURE ORTHOSTATIC DECREASED [None]
  - CHEST PAIN [None]
  - FLUID INTAKE REDUCED [None]
  - HYPOVOLAEMIA [None]
  - NAUSEA [None]
  - PNEUMONIA [None]
  - PYREXIA [None]
  - SEPSIS [None]
  - SYNCOPE [None]
  - VOMITING [None]
